FAERS Safety Report 9808053 (Version 4)
Quarter: 2014Q1

REPORT INFORMATION
  Report Type: Spontaneous
  Country: US (occurrence: US)
  Receive Date: 20140110
  Receipt Date: 20140211
  Transmission Date: 20141002
  Serious: Yes (Hospitalization)
  Sender: FDA-Public Use
  Company Number: US-GLAXOSMITHKLINE-A1055905A

PATIENT
  Age: 52 Year
  Sex: Female

DRUGS (2)
  1. FLOLAN [Suspect]
     Indication: COR PULMONALE CHRONIC
     Dosage: 22NGKM CONTINUOUS
     Route: 042
     Dates: start: 20070906
  2. REVATIO [Concomitant]

REACTIONS (7)
  - Infusion site infection [Recovering/Resolving]
  - Central venous catheterisation [Unknown]
  - Device related infection [Recovering/Resolving]
  - Investigation [Unknown]
  - Septic embolus [Recovering/Resolving]
  - Catheter removal [Recovering/Resolving]
  - Dyspnoea [Unknown]
